FAERS Safety Report 8054893-X (Version None)
Quarter: 2012Q1

REPORT INFORMATION
  Report Type: 
  Country: None (occurrence: None)
  Receive Date: 20120119
  Receipt Date: 20120109
  Transmission Date: 20120608
  Serious: No
  Sender: FDA-Public Use
  Company Number: US-PFIZER INC-2012006369

PATIENT
  Sex: Male
  Weight: 120 kg

DRUGS (3)
  1. SEPTRA [Suspect]
     Indication: INFECTION
     Dosage: 160/800 MG TWO TABLETS, 2X/DAY
     Route: 048
     Dates: start: 20110801
  2. MYCOBUTIN [Concomitant]
     Dosage: UNK
  3. COUMADIN [Concomitant]
     Dosage: UNK

REACTIONS (4)
  - OEDEMA PERIPHERAL [None]
  - UNEVALUABLE EVENT [None]
  - FALL [None]
  - PAIN IN EXTREMITY [None]
